FAERS Safety Report 5939677-8 (Version None)
Quarter: 2008Q4

REPORT INFORMATION
  Report Type: 
  Country: None (occurrence: None)
  Receive Date: 20081030
  Receipt Date: 20081030
  Transmission Date: 20090506
  Serious: Yes (Death)
  Sender: FDA-Public Use
  Company Number: None

PATIENT
  Sex: Female
  Weight: 45.3597 kg

DRUGS (1)
  1. AMBIEN [Suspect]
     Indication: SLEEP DISORDER THERAPY
     Dosage: 10MG 1 PILL
     Dates: start: 20040114

REACTIONS (2)
  - DELUSION [None]
  - LIP DISCOLOURATION [None]
